FAERS Safety Report 8138736-1 (Version None)
Quarter: 2012Q1

REPORT INFORMATION
  Report Type: 
  Country: None (occurrence: None)
  Receive Date: 20120215
  Receipt Date: 20120209
  Transmission Date: 20120608
  Serious: Yes (Hospitalization)
  Sender: FDA-Public Use
  Company Number: CA-GLAXOSMITHKLINE-A0965379A

PATIENT
  Sex: Female

DRUGS (10)
  1. VITAMIN E [Concomitant]
  2. XELODA [Suspect]
     Indication: BREAST CANCER METASTATIC
     Dosage: 1300MG TWICE PER DAY
     Route: 048
  3. CLOBAZAM [Concomitant]
  4. HYDROMORPHONE HCL [Concomitant]
  5. DILANTIN [Concomitant]
  6. FENTANYL-100 [Concomitant]
  7. PANTOPRAZOLE [Concomitant]
  8. TYKERB [Suspect]
     Indication: BREAST CANCER METASTATIC
     Dosage: 1250MG PER DAY
     Route: 048
     Dates: start: 20111230, end: 20120202
  9. DECADRON [Concomitant]
  10. SENOKOT [Concomitant]

REACTIONS (2)
  - ADVERSE EVENT [None]
  - BREAST CANCER METASTATIC [None]
